FAERS Safety Report 6222310-8 (Version None)
Quarter: 2009Q2

REPORT INFORMATION
  Report Type: 
  Country: None (occurrence: None)
  Receive Date: 20090611
  Receipt Date: 20090604
  Transmission Date: 20091009
  Serious: Yes (Other)
  Sender: FDA-Public Use
  Company Number: PHHY2009JP08400

PATIENT
  Sex: Female

DRUGS (13)
  1. STI571/CGP57148B T35717+CAPS [Suspect]
     Indication: GASTROINTESTINAL STROMAL TUMOUR
     Dosage: 400 MG/DAY
     Route: 048
     Dates: start: 20040708, end: 20041008
  2. STI571/CGP57148B T35717+CAPS [Suspect]
     Dosage: 200 MG/DAY
     Route: 048
     Dates: start: 20041108, end: 20041118
  3. STI571/CGP57148B T35717+CAPS [Suspect]
     Dosage: 200 MG/DAY
     Route: 048
     Dates: start: 20041215, end: 20050112
  4. STI571/CGP57148B T35717+CAPS [Suspect]
     Dosage: 100 MG/DAY
     Route: 048
     Dates: start: 20050420, end: 20050614
  5. STI571/CGP57148B T35717+CAPS [Suspect]
     Dosage: 200 MG/DAY
     Route: 048
     Dates: start: 20050706, end: 20051129
  6. STI571/CGP57148B T35717+CAPS [Suspect]
     Dosage: 100 MG/DAY
     Route: 048
     Dates: start: 20060125, end: 20060214
  7. STI571/CGP57148B T35717+CAPS [Suspect]
     Dosage: 100MG/DAY
     Route: 048
     Dates: start: 20060412, end: 20060609
  8. STI571/CGP57148B T35717+CAPS [Suspect]
     Dosage: 100 MG/DAY
     Route: 048
     Dates: start: 20060708, end: 20060721
  9. STI571/CGP57148B T35717+CAPS [Suspect]
     Dosage: 100MG/DAY
     Route: 048
     Dates: start: 20060802, end: 20060831
  10. STI571/CGP57148B T35717+CAPS [Suspect]
     Dosage: 100MG/DAY
     Route: 048
     Dates: start: 20061208, end: 20061231
  11. STI571/CGP57148B T35717+CAPS [Suspect]
     Dosage: 100MG/DAY
     Route: 048
     Dates: start: 20070124, end: 20070228
  12. STI571/CGP57148B T35717+CAPS [Suspect]
     Dosage: 100MG/DAY
     Route: 048
     Dates: start: 20070801, end: 20070828
  13. STI571/CGP57148B T35717+CAPS [Suspect]
     Dosage: 100MG/DAY
     Route: 048
     Dates: start: 20070926, end: 20071023

REACTIONS (4)
  - ANAEMIA MEGALOBLASTIC [None]
  - ASTHENIA [None]
  - HEPATIC FUNCTION ABNORMAL [None]
  - ROAD TRAFFIC ACCIDENT [None]
